FAERS Safety Report 8337579-3 (Version None)
Quarter: 2012Q2

REPORT INFORMATION
  Report Type: 
  Country: None (occurrence: None)
  Receive Date: 20120504
  Receipt Date: 20110908
  Transmission Date: 20120825
  Serious: No
  Sender: FDA-Public Use
  Company Number: US-TEVA-2011004721

PATIENT
  Sex: Male
  Weight: 72.64 kg

DRUGS (4)
  1. NUVIGIL [Suspect]
     Indication: SLEEP APNOEA SYNDROME
     Dosage: 75 MILLIGRAM;
     Route: 048
     Dates: start: 20110905
  2. LUVOX [Concomitant]
  3. FLONASE [Concomitant]
  4. NITROGLYCERIN [Concomitant]

REACTIONS (1)
  - RESTLESSNESS [None]
